FAERS Safety Report 4979316-6 (Version None)
Quarter: 2006Q2

REPORT INFORMATION
  Report Type: 
  Country: None (occurrence: None)
  Receive Date: 20060421
  Receipt Date: 20051019
  Transmission Date: 20061013
  Serious: Yes (Hospitalization, Disabling, Other)
  Sender: FDA-Public Use
  Company Number: US-MERCK-0510USA08176

PATIENT
  Age: 28 Year
  Sex: Male
  Weight: 98 kg

DRUGS (1)
  1. VIOXX [Suspect]
     Indication: ABDOMINAL PAIN
     Route: 048
     Dates: start: 20021204, end: 20030501

REACTIONS (12)
  - ABDOMINAL PAIN [None]
  - ASTHMA [None]
  - CEREBROVASCULAR ACCIDENT [None]
  - CHEST PAIN [None]
  - DEPRESSION [None]
  - HEADACHE [None]
  - HYPERTENSION [None]
  - INJURY [None]
  - PAIN [None]
  - SINUS BRADYCARDIA [None]
  - SLEEP APNOEA SYNDROME [None]
  - TRANSIENT ISCHAEMIC ATTACK [None]
